FAERS Safety Report 19673191 (Version 1)
Quarter: 2021Q3

REPORT INFORMATION
  Report Type: Spontaneous
  Country: US (occurrence: US)
  Receive Date: 20210809
  Receipt Date: 20210809
  Transmission Date: 20211014
  Serious: Yes (Other)
  Sender: FDA-Public Use
  Company Number: US-ACCORD-158563

PATIENT
  Age: 57 Year
  Sex: Female
  Weight: 38.56 kg

DRUGS (9)
  1. MIRTAZAPINE. [Concomitant]
     Active Substance: MIRTAZAPINE
     Dates: start: 20070312, end: 20120807
  2. NAMENDA [Concomitant]
     Active Substance: MEMANTINE HYDROCHLORIDE
     Dates: start: 20120403, end: 20131016
  3. PARAPLATIN [Suspect]
     Active Substance: CARBOPLATIN
     Indication: INVASIVE BREAST CARCINOMA
  4. MEGESTROL [Concomitant]
     Active Substance: MEGESTROL
     Dates: start: 20110801, end: 20130103
  5. DONEPEZIL/DONEPEZIL HYDROCHLORIDE [Concomitant]
     Active Substance: DONEPEZIL HYDROCHLORIDE
     Dates: start: 20121016, end: 20131120
  6. LOSARTAN. [Concomitant]
     Active Substance: LOSARTAN
     Dates: start: 20100628, end: 20131126
  7. DOCETAXEL ACCORD [Suspect]
     Active Substance: DOCETAXEL
     Indication: INVASIVE BREAST CARCINOMA
     Dosage: EVERY THREE WEEKS
     Dates: start: 20110805, end: 20110916
  8. ALENDRONIC ACID [Concomitant]
     Active Substance: ALENDRONIC ACID
     Dates: start: 20080505, end: 20131227
  9. CYPROHEPTADINE. [Concomitant]
     Active Substance: CYPROHEPTADINE
     Dates: start: 20121201, end: 20131120

REACTIONS (1)
  - Alopecia [Not Recovered/Not Resolved]

NARRATIVE: CASE EVENT DATE: 20120216
